FAERS Safety Report 4736746-5 (Version None)
Quarter: 2005Q3

REPORT INFORMATION
  Report Type: 
  Country: None (occurrence: None)
  Receive Date: 20050808
  Receipt Date: 20050802
  Transmission Date: 20060218
  Serious: Yes (Hospitalization)
  Sender: FDA-Public Use
  Company Number: GB-BOEHRINGER INGELHEIM PHARMACEUTICALS, INC.-2005-UK-01427UK

PATIENT
  Sex: Male

DRUGS (4)
  1. ASASANTIN RETARD (00015/0224) [Suspect]
     Indication: CEREBROVASCULAR ACCIDENT
     Route: 048
     Dates: start: 20050401
  2. ADALAT [Suspect]
     Indication: BLOOD PRESSURE
     Dates: start: 19931201
  3. IRBESARTAN [Suspect]
     Indication: BLOOD PRESSURE
     Dates: start: 19931201
  4. BENDROFLUMETHIAZIDE [Suspect]
     Indication: BLOOD PRESSURE
     Dates: start: 19931201

REACTIONS (3)
  - CALCULUS BLADDER [None]
  - DRUG INTERACTION [None]
  - RENAL FAILURE [None]
